FAERS Safety Report 10817619 (Version 1)
Quarter: 2015Q1

REPORT INFORMATION
  Report Type: Report from Study
  Country: US (occurrence: US)
  Receive Date: 20150218
  Receipt Date: 20150218
  Transmission Date: 20150721
  Serious: No
  Sender: FDA-Public Use
  Company Number: US-ABBVIE-14K-163-1288004-00

PATIENT
  Age: 41 Year
  Sex: Male
  Weight: 90.8 kg

DRUGS (2)
  1. HUMIRA [Suspect]
     Active Substance: ADALIMUMAB
     Indication: PSORIASIS
  2. HUMIRA [Suspect]
     Active Substance: ADALIMUMAB
     Indication: PSORIATIC ARTHROPATHY
     Route: 065

REACTIONS (6)
  - Incorrect dose administered [Not Recovered/Not Resolved]
  - Injection site pain [Recovered/Resolved]
  - Muscle strain [Unknown]
  - Injection site extravasation [Not Recovered/Not Resolved]
  - Injection site haemorrhage [Recovered/Resolved with Sequelae]
  - Drug effect decreased [Not Recovered/Not Resolved]

NARRATIVE: CASE EVENT DATE: 2014
